FAERS Safety Report 26195874 (Version 1)
Quarter: 2025Q4

REPORT INFORMATION
  Report Type: Spontaneous
  Country: IN (occurrence: IN)
  Receive Date: 20251224
  Receipt Date: 20251224
  Transmission Date: 20260117
  Serious: Yes (Hospitalization)
  Sender: ELI LILLY AND COMPANY
  Company Number: IN-ELI_LILLY_AND_COMPANY-IN202512024107

PATIENT
  Age: 69 Year
  Sex: Female

DRUGS (3)
  1. BASAGLAR [Suspect]
     Active Substance: INSULIN GLARGINE
     Indication: Diabetes mellitus
     Dosage: 16 U, UNKNOWN (WHENEVER THE SUGAR LEVEL IS HIGH)
     Route: 065
     Dates: start: 2023
  2. BASAGLAR [Suspect]
     Active Substance: INSULIN GLARGINE
     Dosage: 10 U, UNKNOWN (WHENEVER SUGAR LEVEL IS DOWN)
     Route: 065
     Dates: start: 2023
  3. BASAGLAR [Suspect]
     Active Substance: INSULIN GLARGINE
     Dosage: UNK UNK, UNKNOWN
     Route: 065
     Dates: start: 2023

REACTIONS (3)
  - Cerebrovascular accident [Unknown]
  - Paralysis [Unknown]
  - Aphasia [Unknown]

NARRATIVE: CASE EVENT DATE: 20230101
